FAERS Safety Report 5143946-1 (Version None)
Quarter: 2006Q4

REPORT INFORMATION
  Report Type: 
  Country: None (occurrence: None)
  Receive Date: 20061106
  Receipt Date: 20061026
  Transmission Date: 20070319
  Serious: Yes (Hospitalization)
  Sender: FDA-Public Use
  Company Number: PHRM2006FR02922

PATIENT
  Age: 60 Year
  Sex: Male
  Weight: 64 kg

DRUGS (3)
  1. ACETAMINOPHEN W/ PROPOXYPHENE HCL [Concomitant]
     Dosage: UNK, UNK
     Route: 048
     Dates: start: 20051201, end: 20060218
  2. VOLTAREN [Suspect]
     Dosage: UNK, UNK
     Route: 048
     Dates: start: 20051201, end: 20060218
  3. CONTRAMAL [Concomitant]
     Dosage: UNK, UNK
     Route: 048
     Dates: start: 20051201, end: 20060218

REACTIONS (15)
  - BLOOD CREATININE INCREASED [None]
  - BLOOD UREA INCREASED [None]
  - CREATININE RENAL CLEARANCE DECREASED [None]
  - DYSPNOEA [None]
  - ELECTROCARDIOGRAM ABNORMAL [None]
  - FIBRIN D DIMER INCREASED [None]
  - GLYCOSURIA [None]
  - HYPOCAPNIA [None]
  - HYPOXIA [None]
  - LIGHT CHAIN ANALYSIS ABNORMAL [None]
  - PROTEINURIA [None]
  - PULMONARY EMBOLISM [None]
  - RENAL FAILURE ACUTE [None]
  - SINUS TACHYCARDIA [None]
  - URINE LEUKOCYTE ESTERASE POSITIVE [None]
